APPROVED DRUG PRODUCT: POTASSIUM CHLORIDE
Active Ingredient: POTASSIUM CHLORIDE
Strength: 10MEQ
Dosage Form/Route: TABLET, EXTENDED RELEASE;ORAL
Application: A205993 | Product #002 | TE Code: AB2
Applicant: PADAGIS US LLC
Approved: Nov 5, 2015 | RLD: No | RS: No | Type: RX